FAERS Safety Report 8624944-X (Version None)
Quarter: 2012Q3

REPORT INFORMATION
  Report Type: 
  Country: None (occurrence: None)
  Receive Date: 20120827
  Receipt Date: 20120821
  Transmission Date: 20120928
  Serious: Yes (Death, Hospitalization, Other)
  Sender: FDA-Public Use
  Company Number: FR-PFIZER INC-2012194435

PATIENT
  Age: 64 Year
  Sex: Female

DRUGS (1)
  1. SUTENT [Suspect]
     Indication: RENAL CANCER METASTATIC
     Dosage: 50 MG, 1X/DAY, 4 WEEKS OUT OFF 6
     Route: 048
     Dates: start: 20110101, end: 20120801

REACTIONS (5)
  - HYPERTENSION [None]
  - CARDIAC FAILURE [None]
  - MULTI-ORGAN FAILURE [None]
  - SECONDARY HYPOTHYROIDISM [None]
  - THROMBOCYTOPENIA [None]
